FAERS Safety Report 21417213 (Version 1)
Quarter: 2022Q4

REPORT INFORMATION
  Report Type: Spontaneous
  Country: CN (occurrence: CN)
  Receive Date: 20221006
  Receipt Date: 20221006
  Transmission Date: 20230113
  Serious: Yes (Other)
  Sender: FDA-Public Use
  Company Number: CN-PFIZER INC-PV202200074668

PATIENT
  Age: 91 Year
  Sex: Female
  Weight: 45 kg

DRUGS (1)
  1. FLUCONAZOLE [Suspect]
     Active Substance: FLUCONAZOLE
     Indication: Anti-infective therapy
     Dosage: 100 ML, 1X/DAY
     Route: 041
     Dates: start: 20220924, end: 20220924

REACTIONS (3)
  - Insomnia [Recovering/Resolving]
  - Dysphoria [Recovering/Resolving]
  - Blood pressure increased [Recovering/Resolving]

NARRATIVE: CASE EVENT DATE: 20220924
